FAERS Safety Report 12311025 (Version 1)
Quarter: 2016Q2

REPORT INFORMATION
  Report Type: Spontaneous
  Country: US (occurrence: US)
  Receive Date: 20160427
  Receipt Date: 20160427
  Transmission Date: 20160815
  Serious: No
  Sender: FDA-Public Use
  Company Number: US-MIKART, INC.-1051093

PATIENT
  Age: 4 Year
  Sex: Female

DRUGS (1)
  1. TRIHEXYPHENIDYL HYDROCHLORIDE. [Suspect]
     Active Substance: TRIHEXYPHENIDYL HYDROCHLORIDE
     Indication: CEREBRAL PALSY
     Route: 048
     Dates: start: 201401

REACTIONS (3)
  - Agitation [Unknown]
  - Aggression [Unknown]
  - Mydriasis [Unknown]

NARRATIVE: CASE EVENT DATE: 20160321
